FAERS Safety Report 8288181-3 (Version None)
Quarter: 2012Q2

REPORT INFORMATION
  Report Type: 
  Country: None (occurrence: None)
  Receive Date: 20120416
  Receipt Date: 20120413
  Transmission Date: 20120825
  Serious: No
  Sender: FDA-Public Use
  Company Number: US-BAYER-2012-036346

PATIENT
  Age: 67 Year
  Sex: Female

DRUGS (7)
  1. BACTRIM [Concomitant]
  2. CIPROFLOXACIN HCL [Suspect]
  3. ACCUPRIL [Concomitant]
  4. BENADRYL [Concomitant]
  5. AMLODIPINE [Concomitant]
  6. NORVASC [Concomitant]
  7. CEFTIN [Concomitant]

REACTIONS (2)
  - RASH [None]
  - PRURITUS [None]
